FAERS Safety Report 19108633 (Version 1)
Quarter: 2021Q2

REPORT INFORMATION
  Report Type: Spontaneous
  Country: GB (occurrence: GB)
  Receive Date: 20210408
  Receipt Date: 20210408
  Transmission Date: 20210717
  Serious: Yes (Other)
  Sender: FDA-Public Use
  Company Number: GB-TEVA-2021-GB-1897859

PATIENT
  Age: 66 Year
  Sex: Female

DRUGS (6)
  1. TEVA UK TAMOXIFEN [Concomitant]
     Active Substance: TAMOXIFEN
  2. LEVOTHYROXINE. [Suspect]
     Active Substance: LEVOTHYROXINE
     Indication: HYPOTHYROIDISM
     Dosage: 50 MICROGRAM
     Route: 048
     Dates: start: 20210315, end: 20210324
  3. FENOFIBRATE MICRONISED [Concomitant]
     Active Substance: FENOFIBRATE
  4. CETIRIZINE [Concomitant]
     Active Substance: CETIRIZINE HYDROCHLORIDE
  5. GLUCOSAMINE SULPHATE [Concomitant]
     Active Substance: GLUCOSAMINE
  6. COD LIVER OIL [Concomitant]
     Active Substance: COD LIVER OIL

REACTIONS (4)
  - Flushing [Recovering/Resolving]
  - Pruritus [Recovering/Resolving]
  - Burning sensation [Recovering/Resolving]
  - Cold sweat [Recovered/Resolved]

NARRATIVE: CASE EVENT DATE: 20210315
